FAERS Safety Report 8986688 (Version 1)
Quarter: 2012Q4

REPORT INFORMATION
  Report Type: 
  Country: US (occurrence: US)
  Receive Date: 20121227
  Receipt Date: 20121227
  Transmission Date: 20130627
  Serious: No
  Sender: FDA-Public Use
  Company Number: US-009507513-1212USA008780

PATIENT

DRUGS (1)
  1. SAPHRIS [Suspect]
     Route: 048

REACTIONS (2)
  - Drug dependence [Unknown]
  - Inappropriate schedule of drug administration [Unknown]
